FAERS Safety Report 8789935 (Version 1)
Quarter: 2012Q4

REPORT INFORMATION
  Report Type: 
  Country: US (occurrence: US)
  Receive Date: 20120917
  Receipt Date: 20120917
  Transmission Date: 20130627
  Serious: Yes (Other)
  Sender: FDA-Public Use
  Company Number: US-JNJFOC-20120903245

PATIENT
  Sex: Female

DRUGS (5)
  1. DOXORUBICIN HYDROCHLORIDE (DOXIL) [Suspect]
     Indication: OVARIAN CANCER METASTATIC
     Dosage: 2 cycles
     Route: 042
  2. LORAZEPAM [Concomitant]
     Route: 065
  3. BUPROPION [Concomitant]
     Route: 065
  4. ABILIFY [Concomitant]
     Route: 065
  5. THYROID PREPARATIONS [Concomitant]
     Indication: THYROID DISORDER
     Route: 065

REACTIONS (5)
  - Carbohydrate antigen 125 increased [Unknown]
  - Vomiting [Unknown]
  - Stomatitis [Unknown]
  - Eating disorder [Unknown]
  - Oropharyngeal pain [Unknown]
